FAERS Safety Report 13393271 (Version 1)
Quarter: 2017Q1

REPORT INFORMATION
  Report Type: Spontaneous
  Country: US (occurrence: US)
  Receive Date: 20170331
  Receipt Date: 20170331
  Transmission Date: 20170429
  Serious: Yes (Hospitalization, Other)
  Sender: FDA-Public Use
  Company Number: US-NOVOPROD-538143

PATIENT
  Age: 70 Year
  Sex: Female
  Weight: 80.27 kg

DRUGS (6)
  1. LEVEMIR [Suspect]
     Active Substance: INSULIN DETEMIR
     Dosage: UNKNOWN DOSE WHILE ON FLEXTOUCH
     Route: 058
  2. NOVOLOG [Suspect]
     Active Substance: INSULIN ASPART
     Indication: TYPE 2 DIABETES MELLITUS
     Dosage: UNKNOWN DOSE ON VIAL
     Route: 058
  3. NOVOLOG [Suspect]
     Active Substance: INSULIN ASPART
     Dosage: UNKNOWN DOSE ON FLEXPEN
     Route: 058
  4. LEVEMIR [Suspect]
     Active Substance: INSULIN DETEMIR
     Indication: TYPE 2 DIABETES MELLITUS
     Dosage: UNKNOWN DOSE WHILE ON VIAL
     Route: 058
  5. LEVEMIR [Suspect]
     Active Substance: INSULIN DETEMIR
     Dosage: 20 U, BID IN AM AND PM WHILE ON FLEXTOUCH
     Route: 058
  6. NOVOLOG [Suspect]
     Active Substance: INSULIN ASPART
     Dosage: 28 U, QD: 10 U BREAKFAST, 8 U LUNCH, 10 U DINNER ON FLEXPEN
     Route: 058

REACTIONS (3)
  - Long QT syndrome [Unknown]
  - Cardiac failure [Unknown]
  - Bradycardia [Unknown]

NARRATIVE: CASE EVENT DATE: 2016
